FAERS Safety Report 10242203 (Version 1)
Quarter: 2014Q2

REPORT INFORMATION
  Report Type: Spontaneous
  Country: US (occurrence: US)
  Receive Date: 20140617
  Receipt Date: 20140617
  Transmission Date: 20141212
  Serious: No
  Sender: FDA-Public Use
  Company Number: US-PFIZER INC-2014162726

PATIENT
  Sex: Female

DRUGS (17)
  1. LYRICA [Suspect]
     Indication: FIBROMYALGIA
     Dosage: 100 MG, 2X/DAY
     Route: 048
     Dates: start: 2008
  2. LYRICA [Suspect]
     Indication: DIABETIC NEUROPATHY
     Dosage: 250 MG, 2X/DAY
     Dates: start: 201405
  3. LYRICA [Suspect]
     Dosage: 50 MG, 2X/DAY
     Dates: start: 2014
  4. TRICOR [Concomitant]
     Indication: BLOOD CHOLESTEROL INCREASED
     Dosage: 145 MG, 1X/DAY
     Route: 048
     Dates: start: 2008
  5. TOPAMAX [Concomitant]
     Indication: MIGRAINE
     Dosage: 50 MG, 2X/DAY
     Route: 048
     Dates: start: 2008
  6. VITAMIN B12 [Concomitant]
     Dosage: 1000 UG, UNK
     Dates: start: 2008
  7. KLOTRIX [Concomitant]
     Indication: HYPOKALAEMIA
     Dosage: 10 MEQ, 1X/DAY
     Route: 048
     Dates: start: 2008
  8. INVEGA [Concomitant]
     Dosage: 3 MG, 1X/DAY
     Route: 048
     Dates: start: 2008
  9. SPIRIVA [Concomitant]
     Indication: CHRONIC OBSTRUCTIVE PULMONARY DISEASE
     Dosage: 1 DF (1 PUFF) , 2X/DAY
     Dates: start: 2008
  10. SYMBICORT [Concomitant]
     Indication: CHRONIC OBSTRUCTIVE PULMONARY DISEASE
     Dosage: 80/4.5 UG, 2X/DAY
     Dates: start: 2008
  11. PROAIR HFA [Concomitant]
     Indication: ASTHMA
     Dosage: 180 UG, (2 PUFFS EVERY 4 HOURS)
     Dates: start: 2008
  12. PATANOL [Concomitant]
     Indication: DRY EYE
     Dosage: 0.1% OPHTHALMIC SOLUTION ONE DROP IN EACH EYE, 2X/DAY
     Route: 047
     Dates: start: 2008
  13. SINGULAIR [Concomitant]
     Indication: HYPERSENSITIVITY
     Dosage: 10 MG, 1X/DAY
     Route: 048
     Dates: start: 2008
  14. ZOCOR [Concomitant]
     Indication: BLOOD CHOLESTEROL INCREASED
     Dosage: 40 MG, 1X/DAY
     Route: 048
     Dates: start: 2008
  15. ULTRACET [Concomitant]
     Dosage: 50 MG, 2X/DAY
     Route: 048
     Dates: start: 2008
  16. ATENOLOL [Concomitant]
     Indication: CARDIAC FIBRILLATION
     Dosage: 25 MG, 1X/DAY
     Route: 048
     Dates: start: 2012
  17. NUVIGIL [Concomitant]
     Indication: HYPERSOMNIA
     Dosage: 250 MG, 1X/DAY
     Route: 048

REACTIONS (5)
  - Local swelling [Recovered/Resolved]
  - Paraesthesia [Recovered/Resolved]
  - Joint swelling [Recovered/Resolved]
  - Malaise [Recovered/Resolved]
  - Swelling [Recovered/Resolved]
